FAERS Safety Report 6830301-9 (Version None)
Quarter: 2010Q3

REPORT INFORMATION
  Report Type: 
  Country: None (occurrence: None)
  Receive Date: 20100712
  Receipt Date: 20100701
  Transmission Date: 20110219
  Serious: Yes (Hospitalization)
  Sender: FDA-Public Use
  Company Number: US-BIOGENIDEC-2010BI019868

PATIENT
  Age: 45 Year
  Sex: Male

DRUGS (3)
  1. AVONEX [Suspect]
     Indication: MULTIPLE SCLEROSIS
     Route: 030
     Dates: start: 20090401
  2. AVONEX [Suspect]
     Route: 030
     Dates: start: 20080301, end: 20080401
  3. AVONEX [Suspect]
     Route: 030
     Dates: start: 20080401, end: 20090401

REACTIONS (2)
  - BACK PAIN [None]
  - MULTIPLE SCLEROSIS RELAPSE [None]
